FAERS Safety Report 13101229 (Version 2)
Quarter: 2017Q1

REPORT INFORMATION
  Report Type: Spontaneous
  Country: CH (occurrence: CH)
  Receive Date: 20170110
  Receipt Date: 20170110
  Transmission Date: 20170428
  Serious: Yes (Hospitalization, Other)
  Sender: FDA-Public Use
  Company Number: PHHY2016CH180316

PATIENT
  Age: 38 Year
  Sex: Male

DRUGS (7)
  1. OXCARBAZEPINE. [Interacting]
     Active Substance: OXCARBAZEPINE
     Dosage: 1800 MG, (1200 MG IN THE EVENING)
     Route: 065
  2. LAMOTRIGINE. [Suspect]
     Active Substance: LAMOTRIGINE
     Indication: TEMPORAL LOBE EPILEPSY
     Dosage: 500 MG, BID
     Route: 065
  3. LEVETIRACETAM. [Suspect]
     Active Substance: LEVETIRACETAM
     Dosage: REDUCED TO THE HALF
     Route: 065
  4. OXCARBAZEPINE. [Interacting]
     Active Substance: OXCARBAZEPINE
     Dosage: 1200 MG, IN THE MORNING
     Route: 065
  5. LEVETIRACETAM. [Suspect]
     Active Substance: LEVETIRACETAM
     Indication: TEMPORAL LOBE EPILEPSY
     Dosage: 1 G, BID
     Route: 065
  6. OXCARBAZEPINE. [Interacting]
     Active Substance: OXCARBAZEPINE
     Indication: TEMPORAL LOBE EPILEPSY
     Dosage: 600 MG, BID
     Route: 065
  7. VALPROIC ACID. [Interacting]
     Active Substance: VALPROIC ACID
     Indication: TEMPORAL LOBE EPILEPSY
     Dosage: 300 MG, BID
     Route: 065

REACTIONS (10)
  - Vomiting [Unknown]
  - Nausea [Unknown]
  - Nervous system disorder [Unknown]
  - Aggression [Unknown]
  - Therapeutic response decreased [Unknown]
  - Vertigo [Unknown]
  - Nystagmus [Recovered/Resolved]
  - Drug interaction [Unknown]
  - Drug level increased [Recovering/Resolving]
  - Gaze palsy [Unknown]
